FAERS Safety Report 9703396 (Version 1)
Quarter: 2013Q4

REPORT INFORMATION
  Report Type: Spontaneous
  Country: NZ (occurrence: NZ)
  Receive Date: 20131122
  Receipt Date: 20131122
  Transmission Date: 20140711
  Serious: Yes (Other)
  Sender: FDA-Public Use
  Company Number: PHHY2013NZ133376

PATIENT
  Age: 58 Year
  Sex: Female

DRUGS (1)
  1. LETROZOLE [Suspect]
     Dosage: UNK UKN, UNK
     Route: 048

REACTIONS (1)
  - Pneumonitis [Unknown]
